FAERS Safety Report 23224174 (Version 1)
Quarter: 2023Q4

REPORT INFORMATION
  Report Type: Spontaneous
  Country: US (occurrence: US)
  Receive Date: 20231124
  Receipt Date: 20231124
  Transmission Date: 20240110
  Serious: No
  Sender: FDA-Public Use
  Company Number: US-OPELLA-2023OHG013910

PATIENT

DRUGS (1)
  1. CORTIZONE 10 SENSITIVE SKIN ANTI-ITCH CREME [Suspect]
     Active Substance: HYDROCORTISONE
     Indication: Pruritus
     Route: 065

REACTIONS (1)
  - Condition aggravated [Unknown]
